FAERS Safety Report 6503436-8 (Version None)
Quarter: 2009Q4

REPORT INFORMATION
  Report Type: 
  Country: None (occurrence: None)
  Receive Date: 20091201
  Receipt Date: 20090921
  Transmission Date: 20100525
  Serious: Yes (Hospitalization)
  Sender: FDA-Public Use
  Company Number: 2009-199672-NL

PATIENT
  Age: 44 Year
  Sex: Female

DRUGS (4)
  1. NUVARING [Suspect]
     Indication: MENORRHAGIA
     Dates: start: 20040301, end: 20070113
  2. SYNTHROID [Concomitant]
  3. TRICOR [Concomitant]
  4. METFORMIN HCL [Concomitant]

REACTIONS (2)
  - DEEP VEIN THROMBOSIS [None]
  - PULMONARY EMBOLISM [None]
